FAERS Safety Report 6435631-0 (Version None)
Quarter: 2009Q4

REPORT INFORMATION
  Report Type: 
  Country: None (occurrence: None)
  Receive Date: 20091110
  Receipt Date: 20080826
  Transmission Date: 20100525
  Serious: No
  Sender: FDA-Public Use
  Company Number: AECAN200800195

PATIENT
  Age: 49 Year
  Sex: Female

DRUGS (2)
  1. GAMUNEX [Suspect]
     Indication: DRUG USE FOR UNKNOWN INDICATION
     Dosage: 30 GM;TOTAL;IV
     Route: 042
  2. GAMUNEX [Suspect]

REACTIONS (2)
  - HAEMOGLOBINURIA [None]
  - HAEMOLYSIS [None]
